FAERS Safety Report 25435945 (Version 1)
Quarter: 2025Q2

REPORT INFORMATION
  Report Type: Spontaneous
  Country: FR (occurrence: FR)
  Receive Date: 20250613
  Receipt Date: 20250613
  Transmission Date: 20250717
  Serious: Yes (Other)
  Sender: NOVARTIS
  Company Number: FR-002147023-NVSC2025FR068422

PATIENT
  Age: 67 Year
  Sex: Female

DRUGS (1)
  1. BEOVU [Suspect]
     Active Substance: BROLUCIZUMAB-DBLL
     Indication: Diabetic retinal oedema
     Route: 065
     Dates: start: 20250219

REACTIONS (8)
  - Retinal occlusive vasculitis [Recovered/Resolved with Sequelae]
  - Ocular hypertension [Recovered/Resolved with Sequelae]
  - Keratic precipitates [Recovered/Resolved with Sequelae]
  - Vitritis [Recovered/Resolved with Sequelae]
  - Iris adhesions [Recovered/Resolved with Sequelae]
  - Ocular hyperaemia [Recovered/Resolved with Sequelae]
  - Visual acuity reduced [Recovered/Resolved with Sequelae]
  - Anterior chamber flare [Recovered/Resolved with Sequelae]

NARRATIVE: CASE EVENT DATE: 20250224
